FAERS Safety Report 4479563-6 (Version None)
Quarter: 2004Q4

REPORT INFORMATION
  Report Type: 
  Country: None (occurrence: None)
  Receive Date: 20041015
  Receipt Date: 20041006
  Transmission Date: 20050328
  Serious: Yes (Other)
  Sender: FDA-Public Use
  Company Number: 2004-10-0273

PATIENT
  Age: 37 Year
  Sex: Male

DRUGS (1)
  1. COLLATAMP G (GENTAMICIN/COLLAGEN IMPLANT) SPONGE IMPLANT [Suspect]
     Indication: INFECTION
     Dosage: IMPLANT
     Dates: start: 20041004

REACTIONS (5)
  - ANAPHYLACTIC REACTION [None]
  - BLOOD PRESSURE DECREASED [None]
  - MEDICAL DEVICE COMPLICATION [None]
  - RASH [None]
  - WHEEZING [None]
